FAERS Safety Report 18954833 (Version 5)
Quarter: 2021Q2

REPORT INFORMATION
  Report Type: Report from Study
  Country: US (occurrence: US)
  Receive Date: 20210301
  Receipt Date: 20210407
  Transmission Date: 20210717
  Serious: Yes (Death, Hospitalization)
  Sender: FDA-Public Use
  Company Number: US-PFIZER INC-2021178791

PATIENT
  Age: 60 Year
  Sex: Female
  Weight: 74.2 kg

DRUGS (12)
  1. PALBOCICLIB [Suspect]
     Active Substance: PALBOCICLIB
     Indication: BREAST CANCER
     Dosage: 75 MG, 5D ON, 2 D OFF
     Route: 048
     Dates: start: 20181205, end: 20210120
  2. CAPECITABINE. [Suspect]
     Active Substance: CAPECITABINE
     Indication: BREAST CANCER
     Dosage: 1500 MG, BID D1?14, Q21 DAY CYCLE
     Route: 048
     Dates: start: 20210211, end: 20210223
  3. FULVESTRANT. [Suspect]
     Active Substance: FULVESTRANT
     Indication: BREAST CANCER
     Dosage: 500 MG INJECTION, C1D1, C1D15, Q MONTH
     Dates: start: 20181205, end: 20201222
  4. CALCIUM VITAMIN D [Concomitant]
     Active Substance: CALCIUM\VITAMIN D
     Dosage: 1 TAB, DAILY
     Route: 048
  5. ELIQUIS [Concomitant]
     Active Substance: APIXABAN
     Dosage: 5 MG, 2X/DAY
     Route: 048
     Dates: start: 20201022
  6. ZOFRAN [Concomitant]
     Active Substance: ONDANSETRON HYDROCHLORIDE
     Dosage: 4 MG, ONCE
  7. AVELUMAB [Suspect]
     Active Substance: AVELUMAB
     Indication: BREAST CANCER
     Dosage: 10 MG/KG, Q2 WEEKS
     Route: 042
     Dates: start: 20181205, end: 20201222
  8. LORAZEPAM. [Concomitant]
     Active Substance: LORAZEPAM
     Dosage: 0.5MG, TAKE 1 TABLET AT BEDTIME AS NEEDED FOR SLEEP
  9. READI?CAT [Concomitant]
     Active Substance: BARIUM SULFATE
     Dosage: 450 ML, ONCE PRN
     Route: 048
  10. OMNIPAQUE [Concomitant]
     Active Substance: IOHEXOL
     Dosage: 85 ML, ONCE PRN
     Route: 042
  11. URSODIOL. [Concomitant]
     Active Substance: URSODIOL
     Dosage: 900 MG, DAILY
     Route: 048
     Dates: start: 20210119
  12. DEXAMETHASONE. [Concomitant]
     Active Substance: DEXAMETHASONE
     Dosage: 10 ML, 4X/DAY, SWISH AND SPIT

REACTIONS (6)
  - Disseminated intravascular coagulation [Fatal]
  - Abdominal pain [Recovered/Resolved]
  - Haemolysis [Recovered/Resolved]
  - Portal hypertension [Fatal]
  - Hepatic failure [Fatal]
  - Neoplasm progression [Fatal]

NARRATIVE: CASE EVENT DATE: 20210117
